FAERS Safety Report 5162586-1 (Version None)
Quarter: 2006Q4

REPORT INFORMATION
  Report Type: 
  Country: None (occurrence: None)
  Receive Date: 20061201
  Receipt Date: 20061121
  Transmission Date: 20070319
  Serious: Yes (Hospitalization)
  Sender: FDA-Public Use
  Company Number: PHBS2006JP18130

PATIENT
  Age: 70 Year
  Sex: Female

DRUGS (5)
  1. TEGRETOL [Suspect]
     Indication: TRIGEMINAL NEURALGIA
     Dosage: 300 MG/DAY
     Route: 048
     Dates: start: 20050510, end: 20061102
  2. HYDANTOL [Suspect]
     Dosage: 250 MG/DAY
     Route: 048
     Dates: start: 20060921, end: 20061102
  3. DOGMATYL [Concomitant]
     Dosage: 150 MG/DAY
     Route: 048
     Dates: start: 20041130, end: 20061102
  4. CERCINE [Concomitant]
     Dosage: 6 MG/DAY
     Route: 048
     Dates: start: 20041214, end: 20061102
  5. LENDORMIN [Concomitant]
     Dosage: 0.25 MG/DAY
     Route: 048
     Dates: start: 20050607

REACTIONS (6)
  - AUTOIMMUNE DISORDER [None]
  - BLOOD LACTATE DEHYDROGENASE INCREASED [None]
  - HAEMOGLOBIN DECREASED [None]
  - HAEMOLYTIC ANAEMIA [None]
  - INFECTION [None]
  - RETICULOCYTE COUNT INCREASED [None]
